FAERS Safety Report 18936211 (Version 2)
Quarter: 2021Q1

REPORT INFORMATION
  Report Type: Spontaneous
  Country: DE (occurrence: DE)
  Receive Date: 20210224
  Receipt Date: 20210301
  Transmission Date: 20210420
  Serious: Yes (Hospitalization)
  Sender: FDA-Public Use
  Company Number: DE-DSJP-DSE-2021-105003

PATIENT
  Age: 79 Year
  Sex: Female
  Weight: 105 kg

DRUGS (3)
  1. LIXIANA [Suspect]
     Active Substance: EDOXABAN TOSYLATE
     Dosage: UNK
     Dates: start: 202101
  2. LIXIANA [Suspect]
     Active Substance: EDOXABAN TOSYLATE
     Indication: VENOUS THROMBOSIS
     Dosage: UNK
     Dates: start: 20201228, end: 20210110
  3. LIXIANA [Suspect]
     Active Substance: EDOXABAN TOSYLATE
     Indication: PULMONARY EMBOLISM
     Dosage: UNK
     Dates: start: 202010, end: 20201223

REACTIONS (4)
  - Gastritis [Unknown]
  - Gastric ulcer haemorrhage [Unknown]
  - Melaena [Unknown]
  - Incorrect dose administered [Unknown]

NARRATIVE: CASE EVENT DATE: 20201223
